FAERS Safety Report 7030541-2 (Version None)
Quarter: 2010Q4

REPORT INFORMATION
  Report Type: 
  Country: None (occurrence: None)
  Receive Date: 20101006
  Receipt Date: 20100929
  Transmission Date: 20110411
  Serious: Yes (Hospitalization)
  Sender: FDA-Public Use
  Company Number: PT-JNJFOC-20100803924

PATIENT
  Sex: Male
  Weight: 86 kg

DRUGS (12)
  1. DOXORUBICIN HYDROCHLORIDE [Suspect]
     Indication: HODGKIN'S DISEASE
     Dosage: WAS ON 5TH CYCLE WHEN HOSPITALIZED IN DEC 200930 MG ON D1 AND D8, EVERY 21 DAYS
     Route: 065
  2. DOXORUBICIN HYDROCHLORIDE [Suspect]
     Dosage: WAS ON 5TH CYCLE WHEN HOSPITALIZED IN DEC 2009    30 MG ON D1 AND D8, EVERY 21 DAYS
     Route: 065
  3. GEMCITABINE [Suspect]
     Indication: HODGKIN'S DISEASE
     Dosage: D1 AND D8 EVERY 21 DAYS
     Route: 065
  4. GEMCITABINE [Suspect]
     Dosage: CYCLE 2    D1 AND D8 EVERY 21 DAYS
     Route: 065
  5. VINCRISTINE [Suspect]
     Indication: HODGKIN'S DISEASE
     Dosage: CYCLE 2
     Route: 065
  6. VINCRISTINE [Suspect]
     Route: 065
  7. VINORELBINE [Suspect]
     Indication: HODGKIN'S DISEASE
     Dosage: D1 AND D8 EVERY 21 DAYS
     Route: 065
  8. ONDANSETRON [Concomitant]
     Dosage: EV BEFORE CHEMOTHERAPY
     Route: 065
  9. TRAMADOL [Concomitant]
     Dosage: 12/12H
     Route: 065
  10. COTRIM [Concomitant]
     Route: 065
  11. ACYCLOVIR [Concomitant]
     Route: 065
  12. PANTOPRAZOLE SODIUM [Concomitant]
     Route: 065

REACTIONS (3)
  - MUSCULOSKELETAL PAIN [None]
  - NECK PAIN [None]
  - PLEURAL EFFUSION [None]
